FAERS Safety Report 21561268 (Version 2)
Quarter: 2024Q4

REPORT INFORMATION
  Report Type: Report from Study
  Country: US (occurrence: US)
  Receive Date: 20221107
  Receipt Date: 20241015
  Transmission Date: 20250114
  Serious: Yes (Death)
  Sender: NOVARTIS
  Company Number: US-002147023-NVSC2022US250184

PATIENT
  Age: 67 Year
  Sex: Female

DRUGS (1)
  1. PIQRAY [Suspect]
     Active Substance: ALPELISIB
     Indication: Breast cancer metastatic
     Dosage: 300 MG
     Route: 048
     Dates: start: 20220909, end: 20221006

REACTIONS (1)
  - Death [Fatal]

NARRATIVE: CASE EVENT DATE: 20221010
